FAERS Safety Report 8811765 (Version 1)
Quarter: 2012Q4

REPORT INFORMATION
  Report Type: 
  Country: US (occurrence: US)
  Receive Date: 20120927
  Receipt Date: 20120927
  Transmission Date: 20130627
  Serious: No
  Sender: FDA-Public Use
  Company Number: US-009507513-1209USA007426

PATIENT

DRUGS (1)
  1. NUVARING [Suspect]
     Indication: PROPHYLAXIS
     Dosage: UNK
     Route: 067
     Dates: start: 2011

REACTIONS (1)
  - Chlamydial infection [Not Recovered/Not Resolved]
